FAERS Safety Report 10329540 (Version 2)
Quarter: 2014Q3

REPORT INFORMATION
  Report Type: Spontaneous
  Country: US (occurrence: US)
  Receive Date: 20140721
  Receipt Date: 20140924
  Transmission Date: 20150326
  Serious: Yes (Life-Threatening, Hospitalization, Other)
  Sender: FDA-Public Use
  Company Number: US-BAYER-2014-108655

PATIENT
  Age: 20 Year
  Sex: Female
  Weight: 41.72 kg

DRUGS (6)
  1. FERROUS SULFATE [Concomitant]
     Active Substance: FERROUS SULFATE\FERROUS SULFATE, DRIED
     Dosage: 325 MG, TID
     Route: 048
  2. MOTRIN [Concomitant]
     Active Substance: IBUPROFEN
     Dosage: 600 MG, UNK
     Route: 048
  3. COLACE [Concomitant]
     Active Substance: DOCUSATE SODIUM
  4. MIRENA [Suspect]
     Active Substance: LEVONORGESTREL
     Indication: CONTRACEPTION
     Dosage: 20 MCG/24HR, CONT
     Route: 015
     Dates: start: 20120831, end: 20130423
  5. ZITHROMAX [Concomitant]
     Active Substance: AZITHROMYCIN DIHYDRATE
     Dosage: 250 MG, UNK
     Route: 048
     Dates: start: 20130322
  6. DEPO-PROVERA [Concomitant]
     Active Substance: MEDROXYPROGESTERONE ACETATE

REACTIONS (8)
  - Abdominal pain [None]
  - Uterine perforation [None]
  - Scar [None]
  - Infection [None]
  - Medical device discomfort [None]
  - Medical device pain [None]
  - Injury [None]
  - General physical health deterioration [None]

NARRATIVE: CASE EVENT DATE: 20130423
